FAERS Safety Report 15395871 (Version 1)
Quarter: 2018Q3

REPORT INFORMATION
  Report Type: Spontaneous
  Country: US (occurrence: US)
  Receive Date: 20180912
  Receipt Date: 20180912
  Transmission Date: 20181010
  Serious: Yes (Death)
  Sender: FDA-Public Use
  Company Number: None

PATIENT
  Age: 89 Year
  Sex: Female

DRUGS (1)
  1. VALSARTAN 160MG TAB [Suspect]
     Active Substance: VALSARTAN

REACTIONS (22)
  - Lethargy [None]
  - Blood sodium decreased [None]
  - Diabetes mellitus inadequate control [None]
  - Asthenia [None]
  - Dyspnoea [None]
  - Lung carcinoma cell type unspecified stage IV [None]
  - Cyanosis [None]
  - Visual impairment [None]
  - Product use issue [None]
  - Loss of consciousness [None]
  - Tremor [None]
  - Diplopia [None]
  - Gait inability [None]
  - Pleural effusion [None]
  - Headache [None]
  - Dysstasia [None]
  - Blood potassium abnormal [None]
  - Pneumonia [None]
  - Pain [None]
  - Eye movement disorder [None]
  - Blood pressure increased [None]
  - Confusional state [None]
